FAERS Safety Report 9716076 (Version 1)
Quarter: 2013Q4

REPORT INFORMATION
  Report Type: Spontaneous
  Country: US (occurrence: US)
  Receive Date: 20131127
  Receipt Date: 20131127
  Transmission Date: 20140711
  Serious: No
  Sender: FDA-Public Use
  Company Number: US-009507513-1311USA011581

PATIENT
  Age: 60 Year
  Sex: Female

DRUGS (3)
  1. JANUVIA [Suspect]
     Indication: TYPE 2 DIABETES MELLITUS
     Dosage: 100 MG, QD; 1 STANDARD PACKAGE BOTTLE OF 30
     Route: 048
     Dates: start: 20131010, end: 20131017
  2. LANTUS [Concomitant]
     Dosage: 60 MG, QD
  3. LISINOPRIL [Concomitant]
     Dosage: 20 MG, QD

REACTIONS (2)
  - Abdominal pain upper [Recovering/Resolving]
  - Back pain [Recovering/Resolving]
